FAERS Safety Report 12606768 (Version 1)
Quarter: 2016Q3

REPORT INFORMATION
  Report Type: Spontaneous
  Country: IL (occurrence: IL)
  Receive Date: 20160729
  Receipt Date: 20160729
  Transmission Date: 20161109
  Serious: Yes (Death, Other)
  Sender: FDA-Public Use
  Company Number: IL-JAZZ-2016-IL-013745

PATIENT
  Sex: Female

DRUGS (1)
  1. DEFITELIO [Suspect]
     Active Substance: DEFIBROTIDE SODIUM
     Indication: VENOOCCLUSIVE DISEASE
     Dosage: UNK

REACTIONS (1)
  - Sepsis [Fatal]
